FAERS Safety Report 7380176-7 (Version None)
Quarter: 2011Q1

REPORT INFORMATION
  Report Type: 
  Country: None (occurrence: None)
  Receive Date: 20110329
  Receipt Date: 20101213
  Transmission Date: 20110831
  Serious: No
  Sender: FDA-Public Use
  Company Number: US-MYLANLABS-2010S1019086

PATIENT
  Sex: Female

DRUGS (7)
  1. YASMIN [Concomitant]
  2. SYMBICORT [Concomitant]
  3. ZYRTEC [Concomitant]
  4. MULTI-VITAMIN [Concomitant]
  5. ESTRADIOL [Suspect]
     Indication: MIGRAINE PROPHYLAXIS
  6. SINGULAIR [Concomitant]
  7. ALEVE [Concomitant]

REACTIONS (3)
  - APPLICATION SITE ERYTHEMA [None]
  - APPLICATION SITE RASH [None]
  - APPLICATION SITE REACTION [None]
